FAERS Safety Report 7831490-X (Version None)
Quarter: 2011Q4

REPORT INFORMATION
  Report Type: 
  Country: None (occurrence: None)
  Receive Date: 20111021
  Receipt Date: 20111021
  Transmission Date: 20120403
  Serious: Yes (Other)
  Sender: FDA-Public Use
  Company Number: None

PATIENT
  Age: 61 Month
  Sex: Male
  Weight: 94.347 kg

DRUGS (1)
  1. HALOPERIDOL [Suspect]

REACTIONS (6)
  - MOBILITY DECREASED [None]
  - PRODUCT SUBSTITUTION ISSUE [None]
  - MUSCULOSKELETAL STIFFNESS [None]
  - FEELING ABNORMAL [None]
  - SOMNOLENCE [None]
  - ABDOMINAL DISCOMFORT [None]
